FAERS Safety Report 23309380 (Version 1)
Quarter: 2023Q4

REPORT INFORMATION
  Report Type: Spontaneous
  Country: FR (occurrence: FR)
  Receive Date: 20231218
  Receipt Date: 20231218
  Transmission Date: 20240110
  Serious: Yes (Other)
  Sender: FDA-Public Use
  Company Number: FR-BAXTER-2023BAX038174

PATIENT
  Age: 63 Year
  Sex: Female

DRUGS (3)
  1. EXTRANEAL [Suspect]
     Active Substance: CALCIUM CHLORIDE\ICODEXTRIN\MAGNESIUM CHLORIDE\SODIUM CHLORIDE\SODIUM LACTATE
     Indication: Peritoneal dialysis
     Dosage: 1800 ML, 1 BAG PER DAY AT NIGHT
     Route: 033
  2. EXTRANEAL [Suspect]
     Active Substance: CALCIUM CHLORIDE\ICODEXTRIN\MAGNESIUM CHLORIDE\SODIUM CHLORIDE\SODIUM LACTATE
     Dosage: 1800 ML, 1 BAG PER DAY AT NIGHT
     Route: 033
  3. CALCIUM CHLORIDE\DEXTROSE\MAGNESIUM CHLORIDE\SODIUM CHLORIDE [Suspect]
     Active Substance: CALCIUM CHLORIDE\DEXTROSE\MAGNESIUM CHLORIDE\SODIUM CHLORIDE
     Indication: Peritoneal dialysis
     Dosage: 2 (FURTHER NOT SPECIFIED)
     Route: 033

REACTIONS (8)
  - Syncope [Recovered/Resolved]
  - Eructation [Recovered/Resolved]
  - Discomfort [Recovered/Resolved]
  - Decreased appetite [Recovered/Resolved]
  - Abdominal discomfort [Recovered/Resolved]
  - Tension headache [Recovered/Resolved]
  - Malaise [Recovered/Resolved]
  - Nausea [Recovered/Resolved]
